FAERS Safety Report 26002106 (Version 1)
Quarter: 2025Q4

REPORT INFORMATION
  Report Type: Spontaneous
  Country: CN (occurrence: CN)
  Receive Date: 20251105
  Receipt Date: 20251105
  Transmission Date: 20260117
  Serious: Yes (Other)
  Sender: PURDUE
  Company Number: CN-NAPPMUNDI-GBR-2025-0130159

PATIENT
  Age: 21 Year
  Sex: Male
  Weight: 57 kg

DRUGS (4)
  1. MS CONTIN [Suspect]
     Active Substance: MORPHINE SULFATE
     Indication: Cancer pain
     Dosage: 20 MILLIGRAM, Q12H
     Route: 048
     Dates: start: 202510, end: 20251024
  2. MS CONTIN [Suspect]
     Active Substance: MORPHINE SULFATE
     Dosage: 20 MILLIGRAM, DAILY
     Route: 048
     Dates: start: 202510
  3. LECITHIN [Concomitant]
     Active Substance: LECITHIN
     Indication: Liver disorder
     Dosage: 456MG QD
     Route: 041
     Dates: start: 202510
  4. GLUTATHIONE [Concomitant]
     Active Substance: GLUTATHIONE
     Indication: Liver disorder
     Dosage: 1.8G QD IVGTT
     Route: 042
     Dates: start: 202510

REACTIONS (1)
  - Liver injury [Unknown]

NARRATIVE: CASE EVENT DATE: 20251024
